FAERS Safety Report 12295060 (Version 1)
Quarter: 2016Q2

REPORT INFORMATION
  Report Type: Spontaneous
  Country: ES (occurrence: ES)
  Receive Date: 20160422
  Receipt Date: 20160422
  Transmission Date: 20160815
  Serious: Yes (Other)
  Sender: FDA-Public Use
  Company Number: ES-GLAXOSMITHKLINE-ES2016050855

PATIENT
  Age: 73 Year
  Sex: Male

DRUGS (9)
  1. METFORMINA CINFA [Concomitant]
     Dosage: 850 MG, UNK
     Dates: start: 2010
  2. ENALAPRIL-HIDROCLOROTIAZIDA [Concomitant]
     Dosage: UNK
     Dates: start: 2010
  3. TEBETANE COMPUESTO [Concomitant]
     Dosage: UNK
     Dates: start: 2010
  4. DUODART [Suspect]
     Active Substance: DUTASTERIDE\TAMSULOSIN
     Indication: PRODUCT USED FOR UNKNOWN INDICATION
     Dosage: UNK
     Route: 048
     Dates: start: 20160307, end: 20160313
  5. PLAVIX [Concomitant]
     Active Substance: CLOPIDOGREL BISULFATE
     Dosage: 75 MG, UNK
     Dates: start: 2014
  6. ARTEDIL [Concomitant]
     Dosage: 10 MG, UNK
     Dates: start: 2010
  7. ZYLORIC [Concomitant]
     Active Substance: ALLOPURINOL
     Dosage: 100 MG, UNK
     Dates: start: 2010
  8. PANTOPRAZOLE GASTRO-RESISTANT [Concomitant]
     Dosage: 20 MG, UNK
     Dates: start: 2014
  9. SIMVASTATINE [Concomitant]
     Active Substance: SIMVASTATIN
     Dosage: 20 MG, UNK
     Dates: start: 2010

REACTIONS (2)
  - Paraesthesia [Recovered/Resolved]
  - Face oedema [Recovered/Resolved]

NARRATIVE: CASE EVENT DATE: 20160310
